FAERS Safety Report 4718311-9 (Version None)
Quarter: 2005Q3

REPORT INFORMATION
  Report Type: 
  Country: None (occurrence: None)
  Receive Date: 20050718
  Receipt Date: 20050718
  Transmission Date: 20060218
  Serious: Yes (Hospitalization)
  Sender: FDA-Public Use
  Company Number: None

PATIENT
  Age: 41 Year
  Sex: Male
  Weight: 59 kg

DRUGS (12)
  1. ABACAVIR 300 MG [Suspect]
     Indication: HIV INFECTION
     Dosage: 300 MG ORAL
     Route: 048
     Dates: start: 20050201, end: 20050711
  2. KALETRA [Concomitant]
  3. LAMIVUDINE [Concomitant]
  4. ZIDOVUDINE [Concomitant]
  5. FLUCONAZOLE [Concomitant]
  6. ZOSYN [Concomitant]
  7. METOPROLOL [Concomitant]
  8. PLAVIX [Concomitant]
  9. DIGOXIN [Concomitant]
  10. LISINOPRIL [Concomitant]
  11. LAMOTRIGINE [Concomitant]
  12. . [Concomitant]

REACTIONS (4)
  - DYSPNOEA [None]
  - INFLUENZA LIKE ILLNESS [None]
  - LUNG INFILTRATION [None]
  - PYREXIA [None]
